FAERS Safety Report 25447632 (Version 1)
Quarter: 2025Q2

REPORT INFORMATION
  Report Type: Spontaneous
  Country: NL (occurrence: NL)
  Receive Date: 20250617
  Receipt Date: 20250617
  Transmission Date: 20250717
  Serious: Yes (Death, Life-Threatening, Hospitalization, Other)
  Sender: BIOVITRUM
  Company Number: NL-BIOVITRUM-2025-NL-008426

PATIENT
  Age: 18 Year
  Sex: Female

DRUGS (3)
  1. ANAKINRA [Suspect]
     Active Substance: ANAKINRA
     Indication: Haemophagocytic lymphohistiocytosis
     Route: 058
  2. ANAKINRA [Suspect]
     Active Substance: ANAKINRA
     Route: 042
  3. EMAPALUMAB [Suspect]
     Active Substance: EMAPALUMAB
     Indication: Haemophagocytic lymphohistiocytosis

REACTIONS (5)
  - Multiple organ dysfunction syndrome [Fatal]
  - Incorrect route of product administration [Unknown]
  - Shock [Fatal]
  - Off label use [Unknown]
  - Haemodynamic instability [Unknown]
